FAERS Safety Report 4525783-1 (Version None)
Quarter: 2004Q4

REPORT INFORMATION
  Report Type: 
  Country: None (occurrence: None)
  Receive Date: 20041116
  Receipt Date: 20040908
  Transmission Date: 20050328
  Serious: No
  Sender: FDA-Public Use
  Company Number: S04-USA-06093-01

PATIENT
  Age: 70 Year
  Sex: Male
  Weight: 96.1626 kg

DRUGS (9)
  1. NAMENDA [Suspect]
     Indication: DEMENTIA
     Dosage: 5 MG QD PO
     Route: 048
     Dates: start: 20040816, end: 20040822
  2. NAMENDA [Suspect]
     Indication: DEMENTIA
     Dosage: 10 MG QD PO
     Route: 048
     Dates: start: 20040823, end: 20040829
  3. NAMENDA [Suspect]
     Indication: DEMENTIA
     Dosage: 15 MG QD PO
     Route: 048
     Dates: start: 20040830, end: 20040905
  4. NAMENDA [Suspect]
     Indication: DEMENTIA
     Dosage: 20 MG QD PO
     Route: 048
     Dates: start: 20040906
  5. ARICEPT [Concomitant]
  6. HYZAAR [Concomitant]
  7. VITAMIN E [Concomitant]
  8. ASPIRIN [Concomitant]
  9. RESTORIL [Concomitant]

REACTIONS (5)
  - CONFUSIONAL STATE [None]
  - HALLUCINATION, VISUAL [None]
  - HYPOTENSION [None]
  - INSOMNIA [None]
  - WEIGHT DECREASED [None]
